FAERS Safety Report 10345802 (Version 1)
Quarter: 2014Q3

REPORT INFORMATION
  Report Type: Spontaneous
  Country: US (occurrence: US)
  Receive Date: 20140728
  Receipt Date: 20140728
  Transmission Date: 20150326
  Serious: No
  Sender: FDA-Public Use
  Company Number: US-PFIZER INC-2014208186

PATIENT
  Age: 72 Year
  Sex: Female
  Weight: 56 kg

DRUGS (4)
  1. ALAVERT ALLERGY [Suspect]
     Active Substance: LORATADINE
     Indication: SEASONAL ALLERGY
     Dosage: 10MG ONCE A DAY
     Dates: start: 201405, end: 20140701
  2. ALAVERT ALLERGY [Suspect]
     Active Substance: LORATADINE
     Indication: HOUSE DUST ALLERGY
  3. ALAVERT ALLERGY [Suspect]
     Active Substance: LORATADINE
     Indication: ALLERGY TO ANIMAL
  4. ALAVERT ALLERGY [Suspect]
     Active Substance: LORATADINE
     Indication: HYPERSENSITIVITY

REACTIONS (3)
  - Product taste abnormal [Unknown]
  - Drug ineffective [Unknown]
  - Headache [Unknown]

NARRATIVE: CASE EVENT DATE: 2014
